FAERS Safety Report 8174502-9 (Version None)
Quarter: 2012Q1

REPORT INFORMATION
  Report Type: 
  Country: None (occurrence: None)
  Receive Date: 20120229
  Receipt Date: 20120221
  Transmission Date: 20120608
  Serious: Yes (Other)
  Sender: FDA-Public Use
  Company Number: US-ABBOTT-12P-163-0907044-00

PATIENT
  Age: 45 Year
  Sex: Female

DRUGS (6)
  1. CELEBREX [Concomitant]
     Indication: ARTHRITIS
     Route: 048
     Dates: start: 20081001
  2. LISINOPRIL AND HYDROCHLOROTHIAZIDE [Concomitant]
     Indication: HYPERTENSION
     Dosage: 10/12.5MG, DAILY
     Route: 048
     Dates: start: 20090101
  3. METOPROLOL SUCCINATE [Concomitant]
     Indication: HYPERTENSION
     Route: 048
     Dates: start: 20090101
  4. TRAMADOL HCL/APAP [Concomitant]
     Indication: PAIN
     Dosage: 325/37.5MG
     Route: 048
     Dates: start: 20081001
  5. HUMIRA [Suspect]
     Indication: RHEUMATOID ARTHRITIS
     Dates: start: 20081001
  6. METHOTREXATE [Concomitant]
     Indication: ARTHRITIS
     Dosage: 8 TABLETS WEEKLY
     Route: 048
     Dates: start: 20081001

REACTIONS (4)
  - DRUG DOSE OMISSION [None]
  - HERNIA [None]
  - ARTHRITIS [None]
  - BENIGN BREAST NEOPLASM [None]
